FAERS Safety Report 5115340-0 (Version None)
Quarter: 2006Q3

REPORT INFORMATION
  Report Type: 
  Country: None (occurrence: None)
  Receive Date: 20060922
  Receipt Date: 20060906
  Transmission Date: 20061208
  Serious: Yes (Hospitalization)
  Sender: FDA-Public Use
  Company Number: 2006-05-1374

PATIENT
  Age: 69 Year
  Sex: Male

DRUGS (5)
  1. PEG-INTRON [Suspect]
     Indication: HEPATITIS C
     Dosage: 80 MCG; QW; SC
     Route: 058
     Dates: start: 20050120, end: 20051222
  2. INTRON A [Suspect]
     Indication: HEPATITIS C
     Dosage: IM
     Route: 030
     Dates: start: 20051201, end: 20060101
  3. REBETOL [Suspect]
     Indication: HEPATITIS C
     Dosage: SEE IMAGE, PO
     Route: 048
     Dates: start: 20050120, end: 20051222
  4. REBETOL [Suspect]
     Indication: HEPATITIS C
     Dosage: SEE IMAGE, PO
     Route: 048
     Dates: start: 20051201, end: 20060101
  5. INTERFERON [Concomitant]

REACTIONS (2)
  - ACTIVITIES OF DAILY LIVING IMPAIRED [None]
  - POLYMYOSITIS [None]
